FAERS Safety Report 10523798 (Version 1)
Quarter: 2014Q4

REPORT INFORMATION
  Report Type: Spontaneous
  Country: JP (occurrence: JP)
  Receive Date: 20141017
  Receipt Date: 20141017
  Transmission Date: 20150528
  Serious: Yes (Other)
  Sender: FDA-Public Use
  Company Number: JP-009507513-1410JPN005771

PATIENT
  Sex: Male
  Weight: 1.07 kg

DRUGS (7)
  1. UTEMERIN [Concomitant]
     Active Substance: RITODRINE
     Indication: THREATENED LABOUR
  2. RINDERON (BETAMETHASONE SODIUM PHOSPHATE) [Concomitant]
     Dosage: 12 MG, BID
     Route: 064
  3. ESLAX [Suspect]
     Active Substance: ROCURONIUM BROMIDE
     Indication: NEUROMUSCULAR BLOCKING THERAPY
     Dosage: 50 MG, QD
     Route: 064
     Dates: start: 20131224, end: 20131224
  4. RAVONAL [Concomitant]
     Active Substance: THIOPENTAL
     Indication: INDUCTION OF ANAESTHESIA
     Dosage: DAILY DOSAGE: 3 MG/KG, DIVIDED DOSE FREQUENCY UNKNOWN
     Route: 064
  5. DEXTROSE (+) MAGNESIUM SULFATE [Concomitant]
     Indication: THREATENED LABOUR
  6. DEXTROSE (+) MAGNESIUM SULFATE [Concomitant]
     Indication: UTERINE CONTRACTIONS DURING PREGNANCY
     Dosage: DAILY DOSAGE UNKNOWN, CONTINUOUS INFUSION
     Route: 064
     Dates: start: 20131126, end: 20131224
  7. UTEMERIN [Concomitant]
     Active Substance: RITODRINE
     Indication: UTERINE CONTRACTIONS DURING PREGNANCY
     Dosage: DAILY DOSAGE UNKNOWN, CONTINUOUS INFUSION
     Route: 064
     Dates: start: 20131220, end: 20131224

REACTIONS (3)
  - Premature baby [Unknown]
  - Low birth weight baby [Unknown]
  - Bradycardia [Unknown]

NARRATIVE: CASE EVENT DATE: 20131224
